FAERS Safety Report 9217070 (Version 4)
Quarter: 2013Q4

REPORT INFORMATION
  Report Type: Spontaneous
  Country: GB (occurrence: None)
  Receive Date: 20130404
  Receipt Date: 20131015
  Transmission Date: 20140711
  Serious: Yes (Hospitalization, Other)
  Sender: FDA-Public Use
  Company Number: AUR-APL-2013-02713

PATIENT
  Age: 60 Year
  Sex: Male

DRUGS (3)
  1. METFORMIN (METFORMIN) [Suspect]
     Indication: PRODUCT USED FOR UNKNOWN INDICATION
     Dosage: 100 DOSAGE FORMS, TOTAL
     Route: 048
  2. GLIBENCLAMIDE [Suspect]
     Indication: PRODUCT USED FOR UNKNOWN INDICATION
     Dosage: 20 DOSAGE FORM, TOTAL
     Route: 048
  3. MOTRIN (IBUPROFEN) [Suspect]
     Indication: PRODUCT USED FOR UNKNOWN INDICATION
     Dosage: 20 DOSAGE FORM, TOTAL
     Route: 048

REACTIONS (17)
  - Intentional overdose [None]
  - Vomiting [None]
  - Abdominal pain [None]
  - Tachypnoea [None]
  - Agitation [None]
  - Heart rate increased [None]
  - Blood glucose increased [None]
  - Apnoea [None]
  - Ventricular fibrillation [None]
  - Blood lactic acid increased [None]
  - Blood pH increased [None]
  - Blood sodium increased [None]
  - Continuous haemodiafiltration [None]
  - Blood pressure decreased [None]
  - Somnolence [None]
  - Anuria [None]
  - Metabolic acidosis [None]
